FAERS Safety Report 9744461 (Version 2)
Quarter: 2013Q4

REPORT INFORMATION
  Report Type: Spontaneous
  Country: US (occurrence: US)
  Receive Date: 20131210
  Receipt Date: 20131210
  Transmission Date: 20140711
  Serious: Yes (Other)
  Sender: FDA-Public Use
  Company Number: US-ASTRAZENECA-2013SE79307

PATIENT
  Age: 62 Year
  Sex: Male
  Weight: 59 kg

DRUGS (8)
  1. PRILOSEC [Suspect]
     Route: 048
  2. NEXIUM [Suspect]
     Indication: GASTRITIS
     Route: 048
     Dates: start: 20131025
  3. CARDIZEM [Concomitant]
     Indication: BLOOD PRESSURE ABNORMAL
     Route: 048
     Dates: start: 1993
  4. FLOMAX [Concomitant]
     Indication: PROSTATIC DISORDER
     Route: 048
     Dates: start: 2011
  5. SIMVASTATIN [Concomitant]
     Indication: BLOOD CHOLESTEROL ABNORMAL
     Route: 048
     Dates: start: 2007, end: 201310
  6. FOSAMAX [Concomitant]
     Indication: BONE DENSITY ABNORMAL
     Route: 048
     Dates: end: 201310
  7. ZOFRAN [Concomitant]
     Indication: NAUSEA
     Dosage: ONE DF EVERY 8 HOURS AS NEEDED
     Route: 048
  8. CARAFATE [Concomitant]
     Dosage: 1GM/10 ML SUSPENSION, 2 TEASPOONFUL HALF AN HOUR BEFORE BREAKFAST AND DINNER

REACTIONS (9)
  - Inguinal hernia [Unknown]
  - Decreased appetite [Not Recovered/Not Resolved]
  - Weight decreased [Not Recovered/Not Resolved]
  - Gastritis [Unknown]
  - Abdominal pain [Not Recovered/Not Resolved]
  - Nausea [Unknown]
  - Vomiting [Unknown]
  - Off label use [Unknown]
  - Drug ineffective for unapproved indication [Unknown]
